FAERS Safety Report 21047314 (Version 3)
Quarter: 2022Q3

REPORT INFORMATION
  Report Type: Spontaneous
  Country: GB (occurrence: GB)
  Receive Date: 20220706
  Receipt Date: 20220714
  Transmission Date: 20221027
  Serious: Yes (Hospitalization, Other)
  Sender: FDA-Public Use
  Company Number: GB-IPSEN Group, Research and Development-2022-05877

PATIENT
  Age: 55 Year
  Sex: Female

DRUGS (2)
  1. BOTULINUM TOXIN TYPE A [Suspect]
     Active Substance: BOTULINUM TOXIN TYPE A
     Indication: Skin cosmetic procedure
     Dosage: DOSE NOT REPORTED
     Route: 058
     Dates: start: 20210703, end: 20210703
  2. BISOPROLOL [Concomitant]
     Active Substance: BISOPROLOL
     Dosage: ONE TABLET A DAY
     Route: 048

REACTIONS (10)
  - Bacterial infection [Unknown]
  - Injection site mass [Not Recovered/Not Resolved]
  - Post procedural infection [Unknown]
  - Injection site pain [Not Recovered/Not Resolved]
  - Injection site erythema [Not Recovered/Not Resolved]
  - Depressed mood [Unknown]
  - Malaise [Unknown]
  - Emotional distress [Unknown]
  - Incorrect route of product administration [Unknown]
  - Product contamination [Unknown]

NARRATIVE: CASE EVENT DATE: 20210101
